FAERS Safety Report 12554295 (Version 5)
Quarter: 2016Q3

REPORT INFORMATION
  Report Type: Spontaneous
  Country: CN (occurrence: CN)
  Receive Date: 20160713
  Receipt Date: 20160811
  Transmission Date: 20161109
  Serious: Yes (Death, Hospitalization, Other)
  Sender: FDA-Public Use
  Company Number: CN-SA-2016SA126881

PATIENT
  Age: 15 Year
  Sex: Male
  Weight: 51 kg

DRUGS (15)
  1. BUSULFEX [Concomitant]
     Active Substance: BUSULFAN
     Indication: BONE MARROW CONDITIONING REGIMEN
     Dosage: IVGTT (PRECISION INFUSION SET)
     Dates: start: 20160628, end: 20160629
  2. GANCICLOVIR. [Concomitant]
     Active Substance: GANCICLOVIR
     Indication: BONE MARROW CONDITIONING REGIMEN
     Dosage: IVGTT (PRECISION INFUSION SET)
     Dates: start: 20160627, end: 20160704
  3. MESNA. [Concomitant]
     Active Substance: MESNA
     Indication: BONE MARROW CONDITIONING REGIMEN
     Dosage: IVGTT (PRECISION INFUSION SET)
     Dates: start: 20160629, end: 20160703
  4. CYCLOPHOSPHAMIDE. [Concomitant]
     Active Substance: CYCLOPHOSPHAMIDE
     Indication: BONE MARROW CONDITIONING REGIMEN
     Route: 042
     Dates: start: 20160702, end: 20160703
  5. CYCLOSPORIN A [Concomitant]
     Active Substance: CYCLOSPORINE
     Indication: BONE MARROW CONDITIONING REGIMEN
     Route: 048
     Dates: start: 20160701, end: 20160706
  6. BIAPENEM [Concomitant]
     Active Substance: BIAPENEM
     Dates: start: 201606
  7. CYCLOPHOSPHAMIDE. [Concomitant]
     Active Substance: CYCLOPHOSPHAMIDE
     Indication: BONE MARROW CONDITIONING REGIMEN
     Route: 042
     Dates: start: 20160630, end: 20160701
  8. THYMOGLOBULINE [Suspect]
     Active Substance: LAPINE T-LYMPHOCYTE IMMUNE GLOBULIN
     Indication: BONE MARROW CONDITIONING REGIMEN
     Dosage: 12.22MG/KG TOTALLY 22 VIALS
     Route: 042
     Dates: start: 20160630, end: 20160703
  9. PHENYTOIN SODIUM. [Concomitant]
     Active Substance: PHENYTOIN SODIUM
     Indication: BONE MARROW CONDITIONING REGIMEN
     Route: 048
     Dates: start: 20160627, end: 20160627
  10. CELLCEPT [Concomitant]
     Active Substance: MYCOPHENOLATE MOFETIL\MYCOPHENOLATE MOFETIL HYDROCHLORIDE
     Indication: BONE MARROW CONDITIONING REGIMEN
     Dosage: DOSE: 0.5
     Route: 048
     Dates: start: 20160627, end: 20160627
  11. IMIPENEM [Concomitant]
     Active Substance: IMIPENEM
     Indication: ANTI-INFECTIVE THERAPY
     Dosage: IVGTT
     Dates: start: 20160702, end: 20160704
  12. VORICONAZOLE. [Concomitant]
     Active Substance: VORICONAZOLE
     Indication: ANTI-INFECTIVE THERAPY
     Dosage: ROUTE: IVGTT?DOSE: 0.2
     Dates: start: 20160624, end: 20160704
  13. TEICOPLANIN [Concomitant]
     Active Substance: TEICOPLANIN
     Dates: start: 201606
  14. ALPROSTADIL. [Concomitant]
     Active Substance: ALPROSTADIL
     Indication: BONE MARROW CONDITIONING REGIMEN
     Dosage: IVGTT (PRECISION INFUSION SET)
     Dates: start: 20160627, end: 20160706
  15. LINEZOLID. [Concomitant]
     Active Substance: LINEZOLID
     Indication: ANTI-INFECTIVE THERAPY
     Dosage: IVGTT
     Dates: start: 20160623, end: 20160706

REACTIONS (9)
  - Chest pain [Not Recovered/Not Resolved]
  - Stenotrophomonas infection [Unknown]
  - Pyrexia [Not Recovered/Not Resolved]
  - Haemoptysis [Not Recovered/Not Resolved]
  - Pulmonary alveolar haemorrhage [Fatal]
  - Dyspnoea [Not Recovered/Not Resolved]
  - Sepsis [Fatal]
  - Nausea [Recovering/Resolving]
  - Lung infection [Not Recovered/Not Resolved]

NARRATIVE: CASE EVENT DATE: 201606
